FAERS Safety Report 19709219 (Version 2)
Quarter: 2021Q3

REPORT INFORMATION
  Report Type: Spontaneous
  Country: CA (occurrence: CA)
  Receive Date: 20210817
  Receipt Date: 20210830
  Transmission Date: 20211014
  Serious: Yes (Hospitalization)
  Sender: FDA-Public Use
  Company Number: CA-TEVA-2021-CA-1942635

PATIENT
  Age: 70 Year
  Sex: Female

DRUGS (3)
  1. FUROSEMIDE. [Concomitant]
     Active Substance: FUROSEMIDE
     Route: 065
  2. CANDESARTAN. [Concomitant]
     Active Substance: CANDESARTAN
     Route: 065
  3. HYDROCHLOROTHIAZIDE. [Suspect]
     Active Substance: HYDROCHLOROTHIAZIDE
     Dosage: 12.5 MILLIGRAM DAILY;
     Route: 065

REACTIONS (6)
  - Hyponatraemia [Unknown]
  - Vomiting [Unknown]
  - Hypovolaemia [Unknown]
  - Nausea [Unknown]
  - Dizziness [Unknown]
  - Eating disorder [Unknown]
